FAERS Safety Report 16918339 (Version 1)
Quarter: 2019Q4

REPORT INFORMATION
  Report Type: Spontaneous
  Country: CA (occurrence: CA)
  Receive Date: 20191015
  Receipt Date: 20191015
  Transmission Date: 20200122
  Serious: Yes (Other)
  Sender: FDA-Public Use
  Company Number: CA-PFIZER INC-2019437181

PATIENT
  Age: 74 Year
  Sex: Female
  Weight: 51 kg

DRUGS (3)
  1. EVEROLIMUS. [Concomitant]
     Active Substance: EVEROLIMUS
     Dosage: 10 MG, UNK
     Dates: start: 20180902
  2. EXEMESTANE. [Suspect]
     Active Substance: EXEMESTANE
     Dosage: 25 MG, UNK
     Dates: start: 201711
  3. EVEROLIMUS. [Concomitant]
     Active Substance: EVEROLIMUS
     Dosage: 5 MG, DAILY
     Dates: start: 201711

REACTIONS (8)
  - Cerebral atrophy [Unknown]
  - Ventricular internal diameter abnormal [Unknown]
  - Renal impairment [Unknown]
  - Tricuspid valve incompetence [Unknown]
  - Neoplasm progression [Unknown]
  - Aortic arteriosclerosis [Unknown]
  - Pericardial effusion [Unknown]
  - Mitral valve incompetence [Unknown]
